FAERS Safety Report 4847146-1 (Version None)
Quarter: 2005Q4

REPORT INFORMATION
  Report Type: 
  Country: None (occurrence: None)
  Receive Date: 20051205
  Receipt Date: 20051205
  Transmission Date: 20060501
  Serious: Yes (Other)
  Sender: FDA-Public Use
  Company Number: None

PATIENT
  Age: 46 Year
  Sex: Male
  Weight: 74.8435 kg

DRUGS (2)
  1. INTERFERON - HOFFMAN LA ROCHE [Suspect]
     Indication: HEPATITIS C
     Dosage: INJECTED 180 MG ONCE PER WEEK  48 WEEKS
     Dates: start: 20000101
  2. INTERFERON [Concomitant]

REACTIONS (5)
  - ANOREXIA [None]
  - ANTISOCIAL BEHAVIOUR [None]
  - ANXIETY [None]
  - DEPRESSION [None]
  - HYPERTENSION [None]
